FAERS Safety Report 11457566 (Version 3)
Quarter: 2015Q4

REPORT INFORMATION
  Report Type: Report from Study
  Country: CA (occurrence: CA)
  Receive Date: 20150904
  Receipt Date: 20151218
  Transmission Date: 20160304
  Serious: Yes (Hospitalization)
  Sender: FDA-Public Use
  Company Number: CA-AMGEN-CANSL2015088859

PATIENT
  Age: 74 Year
  Sex: Female
  Weight: 50.79 kg

DRUGS (20)
  1. LOSAR                              /01121602/ [Concomitant]
     Dosage: 20 UNK, UNK
  2. METAMUCIL [Concomitant]
     Active Substance: PLANTAGO SEED
     Indication: GASTROINTESTINAL MOTILITY DISORDER
  3. LASIX [Concomitant]
     Active Substance: FUROSEMIDE
     Dosage: 40 UNK, UNK
  4. AMANTIN [Concomitant]
     Dosage: 9 MG, BID
  5. FUROSEMIDE. [Concomitant]
     Active Substance: FUROSEMIDE
     Dosage: 40 MG, QD
  6. ROBAXIN [Concomitant]
     Active Substance: METHOCARBAMOL
     Dosage: UNK
     Dates: end: 201506
  7. DILAUDID [Concomitant]
     Active Substance: HYDROMORPHONE HYDROCHLORIDE
  8. ASA EC [Concomitant]
     Dosage: 81 UNK, UNK
  9. LEVOCARB [Suspect]
     Active Substance: CARBIDOPA\LEVODOPA
     Indication: MUSCLE SPASMS
     Route: 065
  10. HYDROMORPH CONTIN [Concomitant]
     Active Substance: HYDROMORPHONE
     Dosage: 3 MG AND 6 MG, BID
  11. PROLIA [Suspect]
     Active Substance: DENOSUMAB
     Indication: OSTEOPOROSIS POSTMENOPAUSAL
     Dosage: 60 MG, Q6MO
     Route: 058
     Dates: start: 20130703
  12. AMLODIPINE                         /00972402/ [Concomitant]
     Active Substance: AMLODIPINE BESYLATE
     Dosage: 5 MG, BID
  13. AVAPRO [Concomitant]
     Active Substance: IRBESARTAN
     Dosage: 300 MG, QD
  14. ALLOPURINOL. [Concomitant]
     Active Substance: ALLOPURINOL
     Dosage: 100 UNK, UNK
     Dates: end: 201506
  15. CALTRATE PLUS                      /01438001/ [Concomitant]
     Active Substance: CALCIUM\CHOLECALCIFEROL\COPPER\MAGNESIUM\MANGANESE\ZINC
     Dosage: UNK UNK, QD
  16. CEFPROZIL. [Suspect]
     Active Substance: CEFPROZIL
     Indication: PRODUCT USED FOR UNKNOWN INDICATION
     Dosage: UNK
     Route: 065
     Dates: start: 201402
  17. NORVASC [Concomitant]
     Active Substance: AMLODIPINE BESYLATE
     Dosage: 5 UNK, BID
  18. LYRICA [Suspect]
     Active Substance: PREGABALIN
     Indication: NEUROPATHY PERIPHERAL
     Dosage: UNK
     Route: 065
     Dates: start: 2013
  19. BABY ASPIRIN [Concomitant]
     Active Substance: ASPIRIN
     Dosage: 81 UNK, QD
  20. METOPROLOL [Concomitant]
     Active Substance: METOPROLOL
     Dosage: 0.5 DF, QD

REACTIONS (20)
  - Blood pressure increased [Unknown]
  - Joint swelling [Unknown]
  - Restlessness [Unknown]
  - Muscle spasms [Not Recovered/Not Resolved]
  - Renal disorder [Not Recovered/Not Resolved]
  - Erythema [Unknown]
  - Adverse reaction [Not Recovered/Not Resolved]
  - Hypotension [Not Recovered/Not Resolved]
  - Rash [Unknown]
  - Skin exfoliation [Unknown]
  - Unevaluable event [Unknown]
  - Pruritus [Unknown]
  - Vomiting [Unknown]
  - Pollakiuria [Unknown]
  - Scab [Unknown]
  - Anxiety [Unknown]
  - Asthenia [Unknown]
  - Blood iron decreased [Unknown]
  - Swelling [Unknown]
  - Diarrhoea [Unknown]

NARRATIVE: CASE EVENT DATE: 2013
